FAERS Safety Report 11815592 (Version 1)
Quarter: 2015Q4

REPORT INFORMATION
  Report Type: Spontaneous
  Country: JP (occurrence: JP)
  Receive Date: 20151209
  Receipt Date: 20151209
  Transmission Date: 20160305
  Serious: Yes (Other)
  Sender: FDA-Public Use
  Company Number: JP-GILEAD-2015-0186192

PATIENT
  Age: 48 Year
  Sex: Male

DRUGS (10)
  1. PREDNISONE. [Concomitant]
     Active Substance: PREDNISONE
     Indication: IMMUNOSUPPRESSION
     Dosage: 20 MG, QD
     Route: 048
  2. ADEFOVIR DIPIVOXIL. [Interacting]
     Active Substance: ADEFOVIR DIPIVOXIL
     Dosage: 5 MG, QOD
     Route: 065
  3. TACROLIMUS. [Interacting]
     Active Substance: TACROLIMUS
     Indication: IMMUNOSUPPRESSION
     Route: 065
  4. PREDNISONE. [Concomitant]
     Active Substance: PREDNISONE
     Dosage: 2.5 UNK, UNK
  5. ADEFOVIR DIPIVOXIL. [Interacting]
     Active Substance: ADEFOVIR DIPIVOXIL
     Dosage: 10 MG, QOD
     Route: 065
  6. HEPATITIS B IMMUNE GLOBULIN [Concomitant]
     Active Substance: HUMAN HEPATITIS B VIRUS IMMUNE GLOBULIN
     Indication: ANTIVIRAL PROPHYLAXIS
     Dosage: 10000 IU, UNK
     Route: 042
  7. ADEFOVIR DIPIVOXIL. [Interacting]
     Active Substance: ADEFOVIR DIPIVOXIL
     Indication: HEPATITIS B
     Dosage: 10 MG, QD
     Route: 065
     Dates: start: 200203
  8. METHYLPREDNISOLONE. [Concomitant]
     Active Substance: METHYLPREDNISOLONE
     Indication: IMMUNOSUPPRESSION
     Dosage: 500 MG, QD
     Route: 042
  9. ADEFOVIR DIPIVOXIL. [Interacting]
     Active Substance: ADEFOVIR DIPIVOXIL
     Dosage: 2.5 MG, QD
     Route: 065
  10. LAMIVUDINE. [Suspect]
     Active Substance: LAMIVUDINE
     Indication: HEPATIC CIRRHOSIS
     Dosage: 100 MG, QD
     Route: 065
     Dates: start: 200001

REACTIONS (16)
  - Blood alkaline phosphatase increased [Recovering/Resolving]
  - Osteomalacia [Unknown]
  - Arthralgia [Unknown]
  - Renal tubular disorder [Unknown]
  - Drug level increased [Unknown]
  - Arthralgia [Recovering/Resolving]
  - Hypophosphataemia [Recovering/Resolving]
  - Renal failure [Unknown]
  - Blood parathyroid hormone increased [Unknown]
  - Gait disturbance [Unknown]
  - Bone pain [Recovering/Resolving]
  - Musculoskeletal pain [Recovering/Resolving]
  - Renal salt-wasting syndrome [Unknown]
  - Muscular weakness [Unknown]
  - Drug resistance [Unknown]
  - Drug interaction [Unknown]

NARRATIVE: CASE EVENT DATE: 200311
